FAERS Safety Report 16692807 (Version 1)
Quarter: 2019Q4

REPORT INFORMATION
  Report Type: Spontaneous
  Country: US (occurrence: US)
  Receive Date: 20190810
  Receipt Date: 20190810
  Transmission Date: 20200122
  Serious: Yes (Other)
  Sender: FDA-Public Use
  Company Number: None

PATIENT
  Age: 53 Year
  Sex: Female
  Weight: 108.9 kg

DRUGS (14)
  1. TROKENDI XR [Concomitant]
     Active Substance: TOPIRAMATE
  2. BACLOFEN. [Concomitant]
     Active Substance: BACLOFEN
  3. AIMOVIG [Concomitant]
     Active Substance: ERENUMAB-AOOE
  4. VYVANSE [Concomitant]
     Active Substance: LISDEXAMFETAMINE DIMESYLATE
  5. KLOR-CON [Concomitant]
     Active Substance: POTASSIUM CHLORIDE
  6. AIMOVIG [Suspect]
     Active Substance: ERENUMAB-AOOE
     Indication: HEMIPLEGIC MIGRAINE
     Dosage: ?          QUANTITY:1 140ML AUTOINJECTOR;OTHER FREQUENCY:MONTHLY;?
     Route: 058
  7. HYDROCHOLORTHIAZ TAB [Concomitant]
  8. LEVOTHYROXINE. [Concomitant]
     Active Substance: LEVOTHYROXINE
  9. BYSTOLIC [Concomitant]
     Active Substance: NEBIVOLOL HYDROCHLORIDE
  10. ATORVASTATIN [Concomitant]
     Active Substance: ATORVASTATIN
  11. URSODIOL. [Concomitant]
     Active Substance: URSODIOL
  12. CLONAZEPAM. [Concomitant]
     Active Substance: CLONAZEPAM
  13. VIMPAT [Concomitant]
     Active Substance: LACOSAMIDE
  14. ONDANSETRON [Concomitant]
     Active Substance: ONDANSETRON

REACTIONS (3)
  - Withdrawal syndrome [None]
  - Behavioural addiction [None]
  - Feeling jittery [None]

NARRATIVE: CASE EVENT DATE: 20190620
